FAERS Safety Report 7277239-3 (Version None)
Quarter: 2011Q1

REPORT INFORMATION
  Report Type: 
  Country: None (occurrence: None)
  Receive Date: 20110202
  Receipt Date: 20110202
  Transmission Date: 20110831
  Serious: Yes (Other)
  Sender: FDA-Public Use
  Company Number: None

PATIENT
  Age: 60 Year
  Sex: Female
  Weight: 58.9676 kg

DRUGS (3)
  1. EFFEXOR XR [Suspect]
     Indication: HOT FLUSH
     Dosage: 1 CAPSULE DAILY PO
     Route: 048
     Dates: start: 20090101, end: 20101201
  2. EFFEXOR XR [Suspect]
     Indication: MOOD SWINGS
     Dosage: 1 CAPSULE DAILY PO
     Route: 048
     Dates: start: 20090101, end: 20101201
  3. EFFEXOR XR [Suspect]
     Indication: MENOPAUSE
     Dosage: 1 CAPSULE DAILY PO
     Route: 048
     Dates: start: 20090101, end: 20101201

REACTIONS (2)
  - ANXIETY [None]
  - URTICARIA [None]
